FAERS Safety Report 7208671-1 (Version None)
Quarter: 2011Q1

REPORT INFORMATION
  Report Type: 
  Country: None (occurrence: None)
  Receive Date: 20110104
  Receipt Date: 20101228
  Transmission Date: 20110831
  Serious: No
  Sender: FDA-Public Use
  Company Number: US-ROCHE-750971

PATIENT
  Sex: Female

DRUGS (1)
  1. TAMIFLU [Suspect]
     Dosage: DOSE: 1.5 TABLESPOON TWICE DAILY
     Route: 048
     Dates: start: 20101227

REACTIONS (2)
  - NO ADVERSE EVENT [None]
  - DRUG DOSE OMISSION [None]
